FAERS Safety Report 18252200 (Version 1)
Quarter: 2020Q3

REPORT INFORMATION
  Report Type: Spontaneous
  Country: US (occurrence: US)
  Receive Date: 20200910
  Receipt Date: 20200910
  Transmission Date: 20201103
  Serious: No
  Sender: FDA-Public Use
  Company Number: US-FARMAPROD-202005-0679

PATIENT
  Sex: Male

DRUGS (3)
  1. OXERVATE [Suspect]
     Active Substance: CENEGERMIN-BKBJ
     Indication: NEUROTROPHIC KERATOPATHY
     Route: 047
     Dates: start: 20200420, end: 20200616
  2. OXERVATE [Suspect]
     Active Substance: CENEGERMIN-BKBJ
     Indication: ULCERATIVE KERATITIS
  3. OXERVATE [Suspect]
     Active Substance: CENEGERMIN-BKBJ
     Indication: HYPOAESTHESIA EYE

REACTIONS (6)
  - Foreign body sensation in eyes [Unknown]
  - Lacrimation increased [Unknown]
  - Drug ineffective [Unknown]
  - Eye pain [Unknown]
  - Ocular discomfort [Unknown]
  - Photophobia [Unknown]
